FAERS Safety Report 13151503 (Version 1)
Quarter: 2017Q1

REPORT INFORMATION
  Report Type: Spontaneous
  Country: US (occurrence: US)
  Receive Date: 20170125
  Receipt Date: 20170125
  Transmission Date: 20170428
  Serious: Yes (Death)
  Sender: FDA-Public Use
  Company Number: US-PFIZER INC-2017029078

PATIENT
  Age: 42 Year
  Sex: Female

DRUGS (4)
  1. HEROIN [Suspect]
     Active Substance: DIACETYLMORPHINE
     Route: 051
  2. DIAZEPAM. [Suspect]
     Active Substance: DIAZEPAM
     Route: 051
  3. TEMAZEPAM. [Suspect]
     Active Substance: TEMAZEPAM
     Route: 051
  4. AMITRIPTYLINE [Suspect]
     Active Substance: AMITRIPTYLINE
     Route: 051

REACTIONS (3)
  - Cardiac arrest [Fatal]
  - Completed suicide [Fatal]
  - Respiratory arrest [Fatal]

NARRATIVE: CASE EVENT DATE: 2015
